FAERS Safety Report 20602482 (Version 6)
Quarter: 2022Q4

REPORT INFORMATION
  Report Type: Report from Study
  Country: FR (occurrence: FR)
  Receive Date: 20220316
  Receipt Date: 20221130
  Transmission Date: 20230113
  Serious: Yes (Hospitalization)
  Sender: FDA-Public Use
  Company Number: FR-TAKEDA-2022TUS017033

PATIENT
  Age: 18 Year
  Sex: Male

DRUGS (65)
  1. TEDUGLUTIDE [Suspect]
     Active Substance: TEDUGLUTIDE
     Indication: Short-bowel syndrome
     Dosage: 2.4 MILLIGRAM, QD
     Route: 042
     Dates: start: 20180817, end: 20190624
  2. TEDUGLUTIDE [Suspect]
     Active Substance: TEDUGLUTIDE
     Indication: Short-bowel syndrome
     Dosage: 2.4 MILLIGRAM, QD
     Route: 042
     Dates: start: 20180817, end: 20190624
  3. TEDUGLUTIDE [Suspect]
     Active Substance: TEDUGLUTIDE
     Indication: Short-bowel syndrome
     Dosage: 2.4 MILLIGRAM, QD
     Route: 042
     Dates: start: 20180817, end: 20190624
  4. TEDUGLUTIDE [Suspect]
     Active Substance: TEDUGLUTIDE
     Indication: Short-bowel syndrome
     Dosage: 2.4 MILLIGRAM, QD
     Route: 042
     Dates: start: 20180817, end: 20190624
  5. URSODIOL [Concomitant]
     Active Substance: URSODIOL
     Indication: Deficiency of bile secretion
     Dosage: 750 MILLIGRAM, QD
     Route: 048
     Dates: start: 20220302
  6. INNOHEP [Concomitant]
     Active Substance: TINZAPARIN SODIUM
     Indication: Prophylaxis
     Dosage: 17000 INTERNATIONAL UNIT, QD
     Route: 058
     Dates: start: 20220302, end: 202203
  7. INNOHEP [Concomitant]
     Active Substance: TINZAPARIN SODIUM
     Indication: Embolism
     Dosage: 0.39 MILLILITER, QD
     Route: 058
     Dates: start: 20180622, end: 20180707
  8. INNOHEP [Concomitant]
     Active Substance: TINZAPARIN SODIUM
     Dosage: 14000 INTERNATIONAL UNIT, QD
     Route: 058
     Dates: start: 20191218, end: 20200705
  9. INNOHEP [Concomitant]
     Active Substance: TINZAPARIN SODIUM
     Dosage: 16000 INTERNATIONAL UNIT, QD
     Route: 058
     Dates: start: 20200706, end: 202007
  10. INNOHEP [Concomitant]
     Active Substance: TINZAPARIN SODIUM
     Dosage: 17000 INTERNATIONAL UNIT, QD
     Route: 058
     Dates: start: 20220411
  11. PHLOROGLUCINOL [Concomitant]
     Active Substance: PHLOROGLUCINOL
     Indication: Abdominal pain
     Dosage: 160 MILLIGRAM, QD
     Route: 042
     Dates: start: 20201228, end: 202101
  12. PHLOROGLUCINOL [Concomitant]
     Active Substance: PHLOROGLUCINOL
     Dosage: 160 MILLIGRAM, QD
     Route: 048
     Dates: start: 20220304
  13. DOLIPRANE [Concomitant]
     Active Substance: ACETAMINOPHEN
     Indication: Pain
     Dosage: 1000 MILLIGRAM, QID
     Route: 048
     Dates: start: 20220302
  14. DOLIPRANE [Concomitant]
     Active Substance: ACETAMINOPHEN
     Indication: Pyrexia
  15. HUMIRA [Concomitant]
     Active Substance: ADALIMUMAB
     Indication: Arthralgia
     Dosage: 40 MILLIGRAM, 4/WEEK
     Route: 058
     Dates: start: 20180828, end: 20220228
  16. HUMIRA [Concomitant]
     Active Substance: ADALIMUMAB
     Dosage: 40 MILLIGRAM, 4/WEEK
     Route: 058
     Dates: start: 20220415
  17. URSODIOL [Concomitant]
     Active Substance: URSODIOL
     Indication: Cholelithiasis
     Dosage: 750.00 MILLIGRAM, QD
     Route: 048
     Dates: start: 20050730
  18. QUESTRAN [Concomitant]
     Active Substance: CHOLESTYRAMINE
     Indication: Ileectomy
     Dosage: 4 GRAM, QD
     Route: 048
     Dates: start: 20050730, end: 20180622
  19. ESOMEPRAZOLE [Concomitant]
     Active Substance: ESOMEPRAZOLE
     Indication: Gastrooesophageal reflux disease
     Dosage: 40 MILLIGRAM, QD
     Route: 048
     Dates: start: 201609
  20. MONTMORILLONITE [Concomitant]
     Active Substance: MONTMORILLONITE
     Indication: Diarrhoea
     Dosage: 3 GRAM, TID
     Route: 048
     Dates: start: 20050730, end: 20180621
  21. Calcidose [Concomitant]
     Indication: Mineral supplementation
     Dosage: 500.00 MILLIGRAM
     Route: 048
     Dates: start: 200901
  22. SERETIDE [Concomitant]
     Active Substance: FLUTICASONE PROPIONATE\SALMETEROL XINAFOATE
     Indication: Asthma
     Dosage: 2 DOSAGE FORM, BID
     Route: 050
     Dates: start: 201012
  23. CALCIUM PHOSPHATE, DIBASIC, ANHYDROUS\MAGNESIUM GLYCEROPHOSPHATE\PHOSP [Concomitant]
     Active Substance: CALCIUM PHOSPHATE, DIBASIC, ANHYDROUS\MAGNESIUM GLYCEROPHOSPHATE\PHOSPHORIC ACID\SODIUM PHOSPHATE, D
     Indication: Blood phosphorus
     Dosage: 35.00 GTT DROPS, TID
     Route: 048
     Dates: start: 20090430, end: 201805
  24. BACTRIM [Concomitant]
     Active Substance: SULFAMETHOXAZOLE\TRIMETHOPRIM
     Indication: Infection
     Dosage: 400.00 MILLIGRAM
     Route: 048
     Dates: start: 20170419
  25. CREON [Concomitant]
     Active Substance: PANCRELIPASE AMYLASE\PANCRELIPASE LIPASE\PANCRELIPASE PROTEASE
  26. LOPERAMIDE [Concomitant]
     Active Substance: LOPERAMIDE
     Indication: Diarrhoea
     Dosage: 1 DOSAGE FORM
     Route: 048
     Dates: start: 20180622
  27. ASPIRIN DL-LYSINE [Concomitant]
     Active Substance: ASPIRIN DL-LYSINE
     Indication: Gait disturbance
     Dosage: 100.00 MILLIGRAM, QD
     Route: 048
     Dates: start: 20180409
  28. POTASSIUM CHLORIDE [Concomitant]
     Active Substance: POTASSIUM CHLORIDE
     Indication: Blood potassium
     Dosage: 5 DOSAGE FORM, TID
     Route: 048
     Dates: start: 20180408, end: 20180410
  29. SODIUM BICARBONATE [Concomitant]
     Active Substance: SODIUM BICARBONATE
     Indication: Diarrhoea
     Dosage: 24 DOSAGE FORM, QD
     Route: 048
     Dates: start: 20180408, end: 20180410
  30. MAGNESIUM [Concomitant]
     Active Substance: MAGNESIUM
     Indication: Mineral supplementation
     Dosage: 1 DOSAGE FORM, QD
     Route: 048
     Dates: start: 20180408, end: 20180410
  31. ENTOCORT [Concomitant]
     Active Substance: BUDESONIDE
     Dosage: 9 MILLIGRAM, QD
     Route: 048
     Dates: start: 20180408, end: 20180410
  32. DESLORATADINE [Concomitant]
     Active Substance: DESLORATADINE
     Dosage: 5 MILLIGRAM, QD
     Route: 048
     Dates: start: 20161201, end: 201711
  33. WARFARIN SODIUM [Concomitant]
     Active Substance: WARFARIN SODIUM
     Dosage: 6.50 MILLIGRAM, QD
     Route: 048
     Dates: start: 20190618
  34. FLECTOR [Concomitant]
     Active Substance: DICLOFENAC EPOLAMINE
     Indication: Arthritis
     Dosage: 1 DOSAGE FORM, BID
     Route: 061
     Dates: start: 20190822
  35. PAROEX [Concomitant]
     Active Substance: CHLORHEXIDINE GLUCONATE
     Dosage: 10 MILLILITER, TID
     Route: 048
     Dates: start: 20190618
  36. STELARA [Concomitant]
     Active Substance: USTEKINUMAB
     Indication: Arthritis
     Dosage: 90 MILLIGRAM
     Route: 058
     Dates: start: 20190619, end: 20191114
  37. VANCOMYCIN [Concomitant]
     Active Substance: VANCOMYCIN
     Indication: Antibiotic therapy
     Dosage: 20.00 MILLIGRAM/KILOGRAM
     Route: 042
     Dates: start: 20190616, end: 20190618
  38. VANCOMYCIN [Concomitant]
     Active Substance: VANCOMYCIN
     Indication: Pyrexia
     Dosage: 20.00 MILLIGRAM/KILOGRAM
     Route: 042
     Dates: start: 20190619, end: 20190628
  39. VANCOMYCIN [Concomitant]
     Active Substance: VANCOMYCIN
     Dosage: 20.00 MILLIGRAM/KILOGRAM
     Route: 042
     Dates: start: 20200223, end: 20200228
  40. VANCOMYCIN [Concomitant]
     Active Substance: VANCOMYCIN
     Dosage: 20.00 MILLIGRAM/KILOGRAM
     Route: 042
     Dates: start: 20201228, end: 20201229
  41. VANCOMYCIN [Concomitant]
     Active Substance: VANCOMYCIN
     Dosage: 20.00 MILLIGRAM/KILOGRAM
     Route: 042
     Dates: start: 20220302, end: 202203
  42. AMIKACIN SULFATE [Concomitant]
     Active Substance: AMIKACIN SULFATE
     Indication: Infection
     Dosage: 15.00 MILLIGRAM/KILOGRAM
     Route: 042
     Dates: start: 20190616, end: 20190618
  43. AMIKACIN SULFATE [Concomitant]
     Active Substance: AMIKACIN SULFATE
     Dosage: 15.00 MILLIGRAM/KILOGRAM
     Route: 042
     Dates: start: 20190619, end: 20190628
  44. AMIKACIN SULFATE [Concomitant]
     Active Substance: AMIKACIN SULFATE
     Dosage: 15.00 MILLIGRAM/KILOGRAM
     Route: 042
     Dates: start: 20200223, end: 20200223
  45. AMIKACIN SULFATE [Concomitant]
     Active Substance: AMIKACIN SULFATE
     Dosage: 15.00 MILLIGRAM/KILOGRAM
     Route: 042
     Dates: start: 20210103, end: 20210111
  46. PIPERACILLIN SODIUM\TAZOBACTAM SODIUM [Concomitant]
     Active Substance: PIPERACILLIN SODIUM\TAZOBACTAM SODIUM
     Indication: Infection
     Dosage: 4 GRAM
     Route: 042
     Dates: start: 20190616, end: 20190618
  47. PIPERACILLIN SODIUM\TAZOBACTAM SODIUM [Concomitant]
     Active Substance: PIPERACILLIN SODIUM\TAZOBACTAM SODIUM
     Dosage: 4 GRAM
     Route: 042
     Dates: start: 20200223, end: 20200228
  48. PIPERACILLIN SODIUM\TAZOBACTAM SODIUM [Concomitant]
     Active Substance: PIPERACILLIN SODIUM\TAZOBACTAM SODIUM
     Dosage: UNK UNK, QD
     Route: 042
     Dates: start: 20201228, end: 20210103
  49. PIPERACILLIN SODIUM [Concomitant]
     Active Substance: PIPERACILLIN SODIUM
     Indication: Infection
     Dosage: 4.00 GRAM
     Route: 042
     Dates: start: 20190619, end: 20190628
  50. TAZOBACTAM [Concomitant]
     Active Substance: TAZOBACTAM
     Indication: Infection
     Dosage: 0.05 GRAM
     Route: 042
     Dates: start: 20190619, end: 20190628
  51. VALACYCLOVIR HYDROCHLORIDE [Concomitant]
     Active Substance: VALACYCLOVIR HYDROCHLORIDE
     Indication: Groin pain
     Dosage: 1000.00 MILLIGRAM, BID
     Route: 048
     Dates: start: 20190627, end: 20190703
  52. MORPHINE [Concomitant]
     Active Substance: MORPHINE
     Indication: Pain
     Dosage: 30 MILLIGRAM/KILOGRAM
     Route: 042
     Dates: start: 20200222, end: 20200228
  53. MORPHINE [Concomitant]
     Active Substance: MORPHINE
     Dosage: 30 UNK
     Route: 042
     Dates: start: 20201231, end: 20210120
  54. ACUPAN [Concomitant]
     Active Substance: NEFOPAM HYDROCHLORIDE
     Indication: Gait disturbance
     Dosage: 20.00 MILLIGRAM
     Route: 042
     Dates: start: 202002, end: 202003
  55. ACUPAN [Concomitant]
     Active Substance: NEFOPAM HYDROCHLORIDE
     Dosage: 20.00 MILLIGRAM
     Route: 030
     Dates: start: 20201231, end: 20210114
  56. CHOLECALCIFEROL [Concomitant]
     Active Substance: CHOLECALCIFEROL
     Dosage: 1 DOSAGE FORM
     Route: 048
     Dates: start: 20210126
  57. GLIVEC [Concomitant]
     Active Substance: IMATINIB MESYLATE
     Indication: Prophylaxis
  58. FLAGYL [Concomitant]
     Active Substance: METRONIDAZOLE\METRONIDAZOLE HYDROCHLORIDE
     Indication: Antibiotic therapy
     Dosage: 500 MILLIGRAM
     Route: 048
     Dates: start: 20210103, end: 20210111
  59. CLAFORAN [Concomitant]
     Active Substance: CEFOTAXIME SODIUM
     Indication: Antibiotic therapy
     Dosage: UNK UNK, QID
     Route: 042
     Dates: start: 20210103, end: 20210111
  60. NUBAIN [Concomitant]
     Active Substance: NALBUPHINE HYDROCHLORIDE
     Indication: Abdominal pain
     Dosage: 0.2 MILLIGRAM/KILOGRAM
     Route: 042
     Dates: start: 20201228, end: 202101
  61. MELATONIN [Concomitant]
     Active Substance: MELATONIN
     Indication: Sleep disorder
     Dosage: 2 MILLIGRAM, QD
     Route: 048
     Dates: start: 20210126, end: 202106
  62. ACETAMINOPHEN [Concomitant]
     Active Substance: ACETAMINOPHEN
     Indication: Pain
     Dosage: 500 MILLIGRAM
     Route: 048
     Dates: start: 20211026, end: 20211027
  63. VITAMIN D [Concomitant]
     Active Substance: VITAMIN D NOS
     Indication: Osteoporosis
     Dosage: UNK UNK, QD
     Route: 048
     Dates: start: 20211122
  64. ASPIRIN [Concomitant]
     Active Substance: ASPIRIN
     Indication: Pyrexia
     Dosage: 100 MILLIGRAM, QD
     Route: 048
     Dates: start: 20220302
  65. CEFAZOLIN SODIUM [Concomitant]
     Active Substance: CEFAZOLIN SODIUM
     Indication: Infection
     Dosage: 6000 MILLIGRAM, QD
     Route: 042
     Dates: start: 20220309, end: 202203

REACTIONS (1)
  - Pyrexia [Recovered/Resolved]

NARRATIVE: CASE EVENT DATE: 20220302
